FAERS Safety Report 18886733 (Version 2)
Quarter: 2021Q1

REPORT INFORMATION
  Report Type: Spontaneous
  Country: JP (occurrence: JP)
  Receive Date: 20210212
  Receipt Date: 20210303
  Transmission Date: 20210420
  Serious: Yes (Other)
  Sender: FDA-Public Use
  Company Number: JP-AMGEN-JPNSP2020141719

PATIENT
  Age: 77 Year
  Sex: Male
  Weight: 42 kg

DRUGS (10)
  1. VITAMIN D [COLECALCIFEROL] [Concomitant]
     Active Substance: CHOLECALCIFEROL
     Indication: OSTEOPOROSIS
     Dosage: UNK
  2. LORCAM [LORNOXICAM] [Concomitant]
     Active Substance: LORNOXICAM
     Dosage: UNK
  3. CALCIUM L?ASPARTATE [Concomitant]
     Dosage: 2 DOSAGE FORM, QD
  4. ALFACALCIDOL [Concomitant]
     Active Substance: ALFACALCIDOL
     Dosage: 1 MICROGRAM, QD IN MORNING
  5. EVENITY [Suspect]
     Active Substance: ROMOSOZUMAB-AQQG
     Indication: OSTEOPOROSIS
     Dosage: 210 MILLIGRAM
     Route: 058
     Dates: start: 20191210, end: 202008
  6. MEIACT MS [Concomitant]
     Active Substance: CEFDITOREN PIVOXIL
     Dosage: UNK
  7. EYECARE [HYALURONATE SODIUM] [Concomitant]
     Dosage: MORNING, NOON, EVENING, BEFORE BEDTIME (OPHTHALMIC SOLUTION)
  8. LOSARTAN K [Concomitant]
     Active Substance: LOSARTAN POTASSIUM
     Dosage: 1 DOSAGE FORM, QD
  9. CALCIUM [Concomitant]
     Active Substance: CALCIUM
     Indication: OSTEOPOROSIS
     Dosage: UNK, QD
  10. SUMILU STICK [Concomitant]
     Active Substance: FELBINAC
     Dosage: UNK, APPLIED FEW TIME

REACTIONS (2)
  - Tooth extraction [Unknown]
  - Osteonecrosis of jaw [Recovering/Resolving]

NARRATIVE: CASE EVENT DATE: 20200303
